FAERS Safety Report 4473155-0 (Version None)
Quarter: 2004Q4

REPORT INFORMATION
  Report Type: 
  Country: None (occurrence: None)
  Receive Date: 20041008
  Receipt Date: 20040930
  Transmission Date: 20050328
  Serious: Yes (Death)
  Sender: FDA-Public Use
  Company Number: K200401289

PATIENT
  Age: 33 Year
  Sex: Female

DRUGS (3)
  1. SONATA [Suspect]
  2. EPILIM (VALPROATE SODIUM) [Suspect]
     Indication: EPILEPSY
  3. AMOXICILLIN [Suspect]

REACTIONS (3)
  - ANTICONVULSANT DRUG LEVEL INCREASED [None]
  - COMPLETED SUICIDE [None]
  - DRUG LEVEL DECREASED [None]
